FAERS Safety Report 21642037 (Version 1)
Quarter: 2022Q4

REPORT INFORMATION
  Report Type: Spontaneous
  Country: US (occurrence: US)
  Receive Date: 20221125
  Receipt Date: 20221125
  Transmission Date: 20230113
  Serious: No
  Sender: FDA-Public Use
  Company Number: US-APOTEX-2022AP010866

PATIENT
  Age: 30 Year
  Sex: Female

DRUGS (18)
  1. RUGBY NICOTINE [Suspect]
     Active Substance: NICOTINE
     Indication: Smoking cessation therapy
     Dosage: 1 DOSAGE FORM, QD
     Route: 062
     Dates: start: 20220801
  2. LEVOTHYROXINE [Concomitant]
     Active Substance: LEVOTHYROXINE
     Indication: Hypothyroidism
     Dosage: 1 DOSAGE FORM
     Route: 048
  3. VYVANSE [Concomitant]
     Active Substance: LISDEXAMFETAMINE DIMESYLATE
     Indication: Binge eating
     Dosage: 1 DOSAGE FORM, Q.AM (SHE USED TO ABUSIVELY TAKE THE MEDICATION BEFORE)
     Route: 048
  4. DOCUSATE SODIUM [Concomitant]
     Active Substance: DOCUSATE SODIUM
     Indication: Constipation
     Dosage: 1-2 CAPSULES A DAY AS NEEDED (USUALLY TAKES 2 CAPSULES A DAY)
     Route: 048
  5. OMEPRAZOLE [Concomitant]
     Active Substance: OMEPRAZOLE
     Indication: Dyspepsia
     Dosage: 2 DOSAGE FORM, Q.AM
     Route: 065
  6. OMEPRAZOLE [Concomitant]
     Active Substance: OMEPRAZOLE
     Indication: Gastrooesophageal reflux disease
  7. FLUVOXAMINE MALEATE [Concomitant]
     Active Substance: FLUVOXAMINE MALEATE
     Indication: Trichotillomania
     Dosage: 1 TABLET IN THE MORNING AND 1 ? TABLET (150MG) AT BEDTIME
     Route: 065
  8. TRAZODONE [Concomitant]
     Active Substance: TRAZODONE HYDROCHLORIDE
     Indication: Sleep disorder
     Dosage: 150 MILLIGRAM, QD (TAKES 1 ? TAB, 200 MG SOMETIMES OR 250MG OR 300MG IF SHE CANT SLEEP)
     Route: 048
  9. TRAZODONE [Concomitant]
     Active Substance: TRAZODONE HYDROCHLORIDE
     Indication: Mental disorder
  10. LOW-OGESTREL-28 [Concomitant]
     Indication: Contraception
     Dosage: 1 DOSAGE FORM, Q.H.S.
     Route: 065
  11. KLONOPIN [Concomitant]
     Active Substance: CLONAZEPAM
     Indication: Sleep disorder
     Dosage: 1 DOSAGE FORM, TID (PERMITTED TO TAKE 1 TABLET IN DAY, 2 TABLETS AT NIGHT OR 3 TABLETS AT NIGHT)
     Route: 065
  12. KLONOPIN [Concomitant]
     Active Substance: CLONAZEPAM
     Indication: Anxiety
  13. SENNA TIME [Concomitant]
     Active Substance: SENNOSIDES A AND B
     Indication: Constipation
     Dosage: 2 DOSAGE FORM, Q.H.S. (DOES NOT TAKE THIS REGULARLY, SHE ONLY TAKES IT EVERY 3 TO 4 DAYS)
     Route: 048
  14. PRAZOSIN [Concomitant]
     Active Substance: PRAZOSIN
     Indication: Nightmare
     Dosage: 3 DOSAGE FORM, Q.H.S.
     Route: 048
  15. LATUDA [Concomitant]
     Active Substance: LURASIDONE HYDROCHLORIDE
     Indication: Trichotillomania
     Dosage: 1 DOSAGE FORM, Q.H.S. (WITH FOOD AIDS DEPRESSION MEDICATION) )
     Route: 048
  16. LATUDA [Concomitant]
     Active Substance: LURASIDONE HYDROCHLORIDE
     Indication: Anxiety
  17. LATUDA [Concomitant]
     Active Substance: LURASIDONE HYDROCHLORIDE
     Indication: Obsessive-compulsive disorder
  18. BELSOMRA [Concomitant]
     Active Substance: SUVOREXANT
     Indication: Sleep disorder
     Dosage: 20 MILLIGRAM, Q.H.S.
     Route: 065

REACTIONS (2)
  - Nightmare [Unknown]
  - Abnormal dreams [Unknown]

NARRATIVE: CASE EVENT DATE: 20220803
